FAERS Safety Report 20659833 (Version 8)
Quarter: 2024Q1

REPORT INFORMATION
  Report Type: Spontaneous
  Country: US (occurrence: US)
  Receive Date: 20220331
  Receipt Date: 20240118
  Transmission Date: 20240409
  Serious: No
  Sender: FDA-Public Use
  Company Number: US-PFIZER INC-2021855231

PATIENT
  Age: 69 Year
  Sex: Male
  Weight: 76.698 kg

DRUGS (2)
  1. PREMARIN [Suspect]
     Active Substance: ESTROGENS, CONJUGATED
     Indication: Trans-sexualism
     Dosage: TAKE 5 TABLETS BY MOUTH ONCE DAILY
     Route: 048
     Dates: start: 20210706
  2. PREMARIN [Suspect]
     Active Substance: ESTROGENS, CONJUGATED
     Indication: Transgender hormonal therapy

REACTIONS (2)
  - Weight decreased [Recovering/Resolving]
  - Off label use [Unknown]

NARRATIVE: CASE EVENT DATE: 20210706
